FAERS Safety Report 18089199 (Version 1)
Quarter: 2020Q3

REPORT INFORMATION
  Report Type: Spontaneous
  Country: JP (occurrence: JP)
  Receive Date: 20200729
  Receipt Date: 20200729
  Transmission Date: 20201103
  Serious: Yes (Other)
  Sender: FDA-Public Use
  Company Number: JP-MALLINCKRODT-T202003772

PATIENT
  Age: 66 Year
  Sex: Male

DRUGS (1)
  1. OFIRMEV [Suspect]
     Active Substance: ACETAMINOPHEN
     Indication: PRODUCT USED FOR UNKNOWN INDICATION
     Dosage: 1000 MILLIGRAM, UNK
     Route: 042
     Dates: start: 201811, end: 201811

REACTIONS (1)
  - Drug eruption [Unknown]

NARRATIVE: CASE EVENT DATE: 201811
